FAERS Safety Report 4620033-X (Version None)
Quarter: 2005Q1

REPORT INFORMATION
  Report Type: 
  Country: None (occurrence: None)
  Receive Date: 20050324
  Receipt Date: 20050313
  Transmission Date: 20050727
  Serious: Yes (Hospitalization)
  Sender: FDA-Public Use
  Company Number: 2005044121

PATIENT
  Age: 6 Year
  Sex: Female

DRUGS (1)
  1. DOZILE (DOXYLAMINE SUCCINATE) [Suspect]
     Indication: VICTIM OF HOMICIDE
     Dosage: 120 CAPSULES ONCE, ORAL
     Route: 048
     Dates: start: 20050311, end: 20050311

REACTIONS (4)
  - CONVULSION [None]
  - HEART INJURY [None]
  - INTENTIONAL MISUSE [None]
  - VICTIM OF HOMICIDE [None]
